FAERS Safety Report 5481466-5 (Version None)
Quarter: 2007Q4

REPORT INFORMATION
  Report Type: 
  Country: None (occurrence: None)
  Receive Date: 20071005
  Receipt Date: 20071005
  Transmission Date: 20080405
  Serious: Yes (Other)
  Sender: FDA-Public Use
  Company Number: None

PATIENT
  Age: 76 Year
  Sex: Male
  Weight: 77.1115 kg

DRUGS (1)
  1. CLINDAMYCIN HCL [Suspect]
     Indication: TOOTHACHE
     Dosage: 1 CAP FOUR TIMES A DAY  EVERY 6 HRS.  PO
     Route: 048
     Dates: start: 20070901, end: 20070902

REACTIONS (2)
  - DIARRHOEA [None]
  - VOMITING [None]
